FAERS Safety Report 18006518 (Version 2)
Quarter: 2021Q1

REPORT INFORMATION
  Report Type: Spontaneous
  Country: CA (occurrence: CA)
  Receive Date: 20200710
  Receipt Date: 20210112
  Transmission Date: 20210419
  Serious: Yes (Other)
  Sender: FDA-Public Use
  Company Number: CA-ACCORD-189037

PATIENT
  Age: 42 Year
  Sex: Female
  Weight: 81 kg

DRUGS (40)
  1. METHOTREXATE. [Suspect]
     Active Substance: METHOTREXATE
     Indication: PRODUCT USED FOR UNKNOWN INDICATION
     Route: 065
  2. CHLORAPREP [Suspect]
     Active Substance: CHLORHEXIDINE GLUCONATE\ISOPROPYL ALCOHOL
     Indication: PRODUCT USED FOR UNKNOWN INDICATION
     Dosage: TOPICAL SOLUTION
  3. CHLORHEXIDINE [Suspect]
     Active Substance: CHLORHEXIDINE
     Indication: RHEUMATOID ARTHRITIS
     Route: 058
  4. PREDNISONE. [Concomitant]
     Active Substance: PREDNISONE
  5. ASCORBIC ACID. [Concomitant]
     Active Substance: ASCORBIC ACID
  6. CIMZIA [Suspect]
     Active Substance: CERTOLIZUMAB PEGOL
     Indication: RHEUMATOID ARTHRITIS
     Dosage: 1 EVERY 2 WEEKS
     Route: 058
  7. CIMZIA [Suspect]
     Active Substance: CERTOLIZUMAB PEGOL
     Indication: RHEUMATOID ARTHRITIS
     Dosage: 1 EVERY 2 MONTHS
     Route: 058
  8. ARAVA [Suspect]
     Active Substance: LEFLUNOMIDE
     Indication: PRODUCT USED FOR UNKNOWN INDICATION
  9. SULFAMETHOXAZOLE/TRIMETHOPRIM [Suspect]
     Active Substance: SULFAMETHOXAZOLE\TRIMETHOPRIM
     Indication: PRODUCT USED FOR UNKNOWN INDICATION
  10. COLECALCIFEROL [Suspect]
     Active Substance: CHOLECALCIFEROL
     Indication: PRODUCT USED FOR UNKNOWN INDICATION
     Route: 065
  11. FISH OIL [Concomitant]
     Active Substance: FISH OIL
  12. PANTOLOC [Concomitant]
     Active Substance: PANTOPRAZOLE SODIUM
  13. PLAQUENIL [Concomitant]
     Active Substance: HYDROXYCHLOROQUINE SULFATE
  14. VENTOLIN [Concomitant]
     Active Substance: ALBUTEROL SULFATE
  15. ERGOCALCIFEROL. [Concomitant]
     Active Substance: ERGOCALCIFEROL
  16. LEFLUNOMIDE. [Suspect]
     Active Substance: LEFLUNOMIDE
     Indication: PRODUCT USED FOR UNKNOWN INDICATION
     Route: 048
  17. PERCOCET [Suspect]
     Active Substance: ACETAMINOPHEN\OXYCODONE HYDROCHLORIDE
     Indication: PRODUCT USED FOR UNKNOWN INDICATION
     Route: 065
  18. TOCOPHEROL [Concomitant]
     Active Substance: TOCOPHEROL
  19. COLECALCIFEROL [Concomitant]
     Active Substance: CHOLECALCIFEROL
  20. CIMZIA [Suspect]
     Active Substance: CERTOLIZUMAB PEGOL
     Indication: RHEUMATOID ARTHRITIS
     Dosage: 1 EVERY 2 WEEKS
     Route: 058
  21. ALFACALCIDOL [Concomitant]
     Active Substance: ALFACALCIDOL
  22. DESOGESTREL AND ETHINYL ESTRADIOL [Concomitant]
     Active Substance: DESOGESTREL\ETHINYL ESTRADIOL
  23. ZOPICLONE [Concomitant]
     Active Substance: ZOPICLONE
  24. OXYCODONE [Suspect]
     Active Substance: OXYCODONE
     Indication: PRODUCT USED FOR UNKNOWN INDICATION
  25. PERIOGARD ALCOHOL FREE [Suspect]
     Active Substance: CHLORHEXIDINE GLUCONATE
     Indication: PRODUCT USED FOR UNKNOWN INDICATION
     Dosage: BUCCAL SOLUTION
     Route: 002
  26. UBIDECARENONE. [Concomitant]
     Active Substance: UBIDECARENONE
  27. HYDROXYCHLOROQUINE [Concomitant]
     Active Substance: HYDROXYCHLOROQUINE
  28. PANTOPRAZOLE [Concomitant]
     Active Substance: PANTOPRAZOLE
  29. PARACETAMOL [Suspect]
     Active Substance: ACETAMINOPHEN
     Indication: PRODUCT USED FOR UNKNOWN INDICATION
  30. ORENCIA [Suspect]
     Active Substance: ABATACEPT
     Indication: PRODUCT USED FOR UNKNOWN INDICATION
     Route: 065
  31. SIMPONI [Suspect]
     Active Substance: GOLIMUMAB
     Indication: PRODUCT USED FOR UNKNOWN INDICATION
     Dosage: SUBCUTANEOUS SOLUTION
     Route: 058
  32. OXYCODONE/PARACETAMOL [Suspect]
     Active Substance: ACETAMINOPHEN\OXYCODONE HYDROCHLORIDE
     Indication: PRODUCT USED FOR UNKNOWN INDICATION
     Route: 065
  33. REACTINE [Concomitant]
  34. SULFAMETHOXAZOLE/TRIMETHOPRIM [Concomitant]
     Active Substance: SULFAMETHOXAZOLE\TRIMETHOPRIM
  35. IBUPROFEN. [Concomitant]
     Active Substance: IBUPROFEN
  36. TYLENOL [Concomitant]
     Active Substance: ACETAMINOPHEN
  37. CIMZIA [Suspect]
     Active Substance: CERTOLIZUMAB PEGOL
     Indication: RHEUMATOID ARTHRITIS
     Route: 058
  38. ACTEMRA [Suspect]
     Active Substance: TOCILIZUMAB
     Indication: PRODUCT USED FOR UNKNOWN INDICATION
  39. ENBREL [Suspect]
     Active Substance: ETANERCEPT
     Indication: RHEUMATOID ARTHRITIS
     Route: 058
  40. UBIDECARENONE. [Concomitant]
     Active Substance: UBIDECARENONE

REACTIONS (22)
  - Asthenia [Unknown]
  - Insomnia [Unknown]
  - Sinusitis [Unknown]
  - Vomiting [Unknown]
  - Incorrect route of product administration [Unknown]
  - Body temperature increased [Unknown]
  - Contraindicated product administered [Unknown]
  - Muscle spasticity [Unknown]
  - Peripheral swelling [Unknown]
  - Back pain [Unknown]
  - Lower respiratory tract infection [Unknown]
  - Pruritus [Unknown]
  - Diarrhoea [Unknown]
  - Ear pain [Unknown]
  - Headache [Unknown]
  - Night sweats [Unknown]
  - Urticaria [Unknown]
  - Rash [Unknown]
  - Abdominal pain upper [Unknown]
  - Joint swelling [Unknown]
  - Pain [Unknown]
  - Respiratory disorder [Unknown]
